FAERS Safety Report 14537001 (Version 1)
Quarter: 2018Q1

REPORT INFORMATION
  Report Type: Report from Study
  Country: FR (occurrence: FR)
  Receive Date: 20180215
  Receipt Date: 20180215
  Transmission Date: 20180509
  Serious: Yes (Other)
  Sender: FDA-Public Use
  Company Number: FR-SEATTLE GENETICS-2018SGN00100

PATIENT
  Age: 61 Year
  Sex: Female
  Weight: 53 kg

DRUGS (5)
  1. BRENTUXIMAB VEDOTIN-MPI [Suspect]
     Active Substance: BRENTUXIMAB VEDOTIN
     Dosage: 80 MG, UNK
     Route: 042
     Dates: start: 20171220
  2. BRENTUXIMAB VEDOTIN-MPI [Suspect]
     Active Substance: BRENTUXIMAB VEDOTIN
     Indication: ANGIOIMMUNOBLASTIC T-CELL LYMPHOMA
     Dosage: 95 MG, UNK
     Route: 042
     Dates: start: 20171012
  3. BRENTUXIMAB VEDOTIN-MPI [Suspect]
     Active Substance: BRENTUXIMAB VEDOTIN
     Dosage: 90 MG, UNK
     Route: 042
     Dates: start: 20180118
  4. BRENTUXIMAB VEDOTIN-MPI [Suspect]
     Active Substance: BRENTUXIMAB VEDOTIN
     Dosage: 85 MG, UNK
     Route: 042
     Dates: start: 20171124
  5. BENDAMUSTINE [Concomitant]
     Active Substance: BENDAMUSTINE
     Indication: LYMPHOMA
     Dosage: 75 MG, UNK
     Route: 042
     Dates: start: 20171124, end: 20171220

REACTIONS (10)
  - Lymphopenia [Not Recovered/Not Resolved]
  - Hypokalaemia [Unknown]
  - General physical health deterioration [Unknown]
  - Off label use [Unknown]
  - Productive cough [Recovered/Resolved]
  - Weight decreased [Unknown]
  - Thrombocytopenia [Recovering/Resolving]
  - Anaemia [Not Recovered/Not Resolved]
  - Nasopharyngitis [Unknown]
  - Sputum discoloured [Recovered/Resolved]

NARRATIVE: CASE EVENT DATE: 20171012
